FAERS Safety Report 18182405 (Version 1)
Quarter: 2020Q3

REPORT INFORMATION
  Report Type: Other
  Country: IR (occurrence: IR)
  Receive Date: 20200821
  Receipt Date: 20200821
  Transmission Date: 20201103
  Serious: Yes (Life-Threatening)
  Sender: FDA-Public Use
  Company Number: IR-B.BRAUN MEDICAL INC.-2088904

PATIENT
  Age: 26 Year
  Sex: Male

DRUGS (1)
  1. LIDOCAINE HYDROCHLORIDE AND DEXTROSE [Suspect]
     Active Substance: DEXTROSE\LIDOCAINE HYDROCHLORIDE
     Indication: TRACHEAL STENOSIS
     Route: 053

REACTIONS (2)
  - Hypoxia [Recovered/Resolved]
  - Laryngospasm [Recovered/Resolved]
